FAERS Safety Report 24777407 (Version 2)
Quarter: 2024Q4

REPORT INFORMATION
  Report Type: Spontaneous
  Country: US (occurrence: US)
  Receive Date: 20241226
  Receipt Date: 20241226
  Transmission Date: 20250115
  Serious: Yes (Hospitalization)
  Sender: ROCHE
  Company Number: US-ROCHE-10000161058

PATIENT

DRUGS (29)
  1. RITUXAN [Suspect]
     Active Substance: RITUXIMAB
     Indication: Burkitt^s lymphoma
     Route: 065
     Dates: start: 202105
  2. RITUXAN [Suspect]
     Active Substance: RITUXIMAB
     Indication: Drug intolerance
  3. RITUXAN [Suspect]
     Active Substance: RITUXIMAB
     Indication: Diffuse large B-cell lymphoma
  4. RITUXAN [Suspect]
     Active Substance: RITUXIMAB
     Indication: Chronic lymphocytic leukaemia refractory
  5. RITUXAN [Suspect]
     Active Substance: RITUXIMAB
     Indication: Microscopic polyangiitis
  6. RITUXAN [Suspect]
     Active Substance: RITUXIMAB
     Indication: Pemphigus
  7. RITUXAN [Suspect]
     Active Substance: RITUXIMAB
     Indication: Granulomatosis with polyangiitis
  8. RITUXAN [Suspect]
     Active Substance: RITUXIMAB
     Indication: Joint injury
  9. RITUXAN [Suspect]
     Active Substance: RITUXIMAB
     Indication: Rheumatoid arthritis
  10. RITUXAN [Suspect]
     Active Substance: RITUXIMAB
     Indication: Granulomatosis with polyangiitis
  11. RITUXAN [Suspect]
     Active Substance: RITUXIMAB
     Indication: B-cell lymphoma stage III
  12. RITUXAN [Suspect]
     Active Substance: RITUXIMAB
     Indication: B-cell lymphoma stage IV
  13. RITUXAN [Suspect]
     Active Substance: RITUXIMAB
     Indication: Follicular lymphoma
  14. RITUXAN [Suspect]
     Active Substance: RITUXIMAB
     Indication: Follicular lymphoma
  15. OCREVUS [Suspect]
     Active Substance: OCRELIZUMAB
     Indication: Burkitt^s lymphoma
     Route: 065
  16. OCREVUS [Suspect]
     Active Substance: OCRELIZUMAB
     Indication: Drug intolerance
  17. OCREVUS [Suspect]
     Active Substance: OCRELIZUMAB
     Indication: Diffuse large B-cell lymphoma
  18. OCREVUS [Suspect]
     Active Substance: OCRELIZUMAB
     Indication: Chronic lymphocytic leukaemia refractory
  19. OCREVUS [Suspect]
     Active Substance: OCRELIZUMAB
     Indication: Microscopic polyangiitis
  20. OCREVUS [Suspect]
     Active Substance: OCRELIZUMAB
     Indication: Pemphigus
  21. OCREVUS [Suspect]
     Active Substance: OCRELIZUMAB
     Indication: Granulomatosis with polyangiitis
  22. OCREVUS [Suspect]
     Active Substance: OCRELIZUMAB
     Indication: Joint injury
  23. OCREVUS [Suspect]
     Active Substance: OCRELIZUMAB
     Indication: Rheumatoid arthritis
  24. OCREVUS [Suspect]
     Active Substance: OCRELIZUMAB
     Indication: Granulomatosis with polyangiitis
  25. OCREVUS [Suspect]
     Active Substance: OCRELIZUMAB
     Indication: Granulomatosis with polyangiitis
  26. OCREVUS [Suspect]
     Active Substance: OCRELIZUMAB
     Indication: B-cell lymphoma stage III
  27. OCREVUS [Suspect]
     Active Substance: OCRELIZUMAB
     Indication: B-cell lymphoma stage IV
  28. OCREVUS [Suspect]
     Active Substance: OCRELIZUMAB
     Indication: Follicular lymphoma
  29. OCREVUS [Suspect]
     Active Substance: OCRELIZUMAB
     Indication: Follicular lymphoma

REACTIONS (5)
  - Multiple sclerosis [Unknown]
  - COVID-19 [Unknown]
  - Alopecia [Unknown]
  - Hemiparesis [Unknown]
  - Pain [Unknown]

NARRATIVE: CASE EVENT DATE: 20210510
